FAERS Safety Report 25369742 (Version 2)
Quarter: 2025Q2

REPORT INFORMATION
  Report Type: Spontaneous
  Country: IL (occurrence: IL)
  Receive Date: 20250528
  Receipt Date: 20250611
  Transmission Date: 20250717
  Serious: No
  Sender: PFIZER
  Company Number: IL-PFIZER INC-PV202500042885

PATIENT
  Age: 13 Year
  Sex: Male

DRUGS (2)
  1. NGENLA [Suspect]
     Active Substance: SOMATROGON-GHLA
     Dates: start: 20201022
  2. NGENLA [Suspect]
     Active Substance: SOMATROGON-GHLA
     Dosage: DOSE OF 32, WEEKLY

REACTIONS (4)
  - Injection site pain [Unknown]
  - Drug ineffective [Unknown]
  - Lack of injection site rotation [Unknown]
  - Product dose omission issue [Unknown]
